FAERS Safety Report 7796801-2 (Version None)
Quarter: 2011Q4

REPORT INFORMATION
  Report Type: 
  Country: None (occurrence: None)
  Receive Date: 20111005
  Receipt Date: 20110927
  Transmission Date: 20120403
  Serious: Yes (Other)
  Sender: FDA-Public Use
  Company Number: PHHY2011GB85582

PATIENT
  Age: 32 Year
  Sex: Male

DRUGS (4)
  1. CARBOPLATIN [Suspect]
     Indication: TESTICULAR MALIGNANT TERATOMA STAGE II
     Route: 065
  2. ETOPOSIDE [Suspect]
     Indication: TESTICULAR MALIGNANT TERATOMA STAGE II
     Dosage: 120 MG/M2, UNK
     Route: 042
     Dates: start: 20110101
  3. LITHIUM [Suspect]
  4. ETOPOSIDE [Suspect]
     Dosage: 240 MG/M2, UNK
     Route: 048
     Dates: start: 20110101

REACTIONS (1)
  - RENAL FAILURE ACUTE [None]
